FAERS Safety Report 10165241 (Version 1)
Quarter: 2014Q2

REPORT INFORMATION
  Report Type: Spontaneous
  Country: US (occurrence: US)
  Receive Date: 20140510
  Receipt Date: 20140510
  Transmission Date: 20141212
  Serious: No
  Sender: FDA-Public Use
  Company Number: US-BRISTOL-MYERS SQUIBB COMPANY-20347332

PATIENT
  Age: 78 Year
  Sex: Male
  Weight: 99.77 kg

DRUGS (1)
  1. BYDUREON [Suspect]
     Indication: TYPE 2 DIABETES MELLITUS
     Dosage: DEC19/ONGOING
     Route: 058

REACTIONS (1)
  - Injection site nodule [Unknown]
